FAERS Safety Report 5032134-5 (Version None)
Quarter: 2006Q2

REPORT INFORMATION
  Report Type: 
  Country: None (occurrence: None)
  Receive Date: 20060619
  Receipt Date: 20060607
  Transmission Date: 20061013
  Serious: Yes (Other)
  Sender: FDA-Public Use
  Company Number: 200612414BCC

PATIENT
  Age: 67 Year
  Sex: Female
  Weight: 53.5244 kg

DRUGS (3)
  1. ALEVE [Suspect]
     Indication: DRUG USE FOR UNKNOWN INDICATION
     Dosage: 440 MG, ONCE, ORAL
     Route: 048
     Dates: start: 20060601
  2. ZETIA [Concomitant]
  3. THYROID MEDICATIONS [Concomitant]

REACTIONS (2)
  - GAIT DISTURBANCE [None]
  - MEMORY IMPAIRMENT [None]
